FAERS Safety Report 13322271 (Version 1)
Quarter: 2017Q1

REPORT INFORMATION
  Report Type: Spontaneous
  Country: US (occurrence: US)
  Receive Date: 20170309
  Receipt Date: 20170309
  Transmission Date: 20170428
  Serious: No
  Sender: FDA-Public Use
  Company Number: US-PFIZER INC-2017098718

PATIENT
  Age: 65 Year
  Sex: Female
  Weight: 95 kg

DRUGS (1)
  1. LYRICA [Suspect]
     Active Substance: PREGABALIN
     Indication: NEUROPATHY PERIPHERAL
     Dosage: 50 MG, 2X/DAY, IN THE MORNING AND IN THE NIGHT
     Route: 048

REACTIONS (2)
  - Feeling abnormal [Unknown]
  - Sensory disturbance [Unknown]
